FAERS Safety Report 16763541 (Version 1)
Quarter: 2019Q3

REPORT INFORMATION
  Report Type: Spontaneous
  Country: CZ (occurrence: CZ)
  Receive Date: 20190902
  Receipt Date: 20190902
  Transmission Date: 20191005
  Serious: Yes (Hospitalization)
  Sender: FDA-Public Use
  Company Number: CZ-PFIZER INC-2019373693

PATIENT
  Age: 92 Year
  Sex: Male
  Weight: 92 kg

DRUGS (5)
  1. NEURONTIN [Suspect]
     Active Substance: GABAPENTIN
     Dosage: 100 MG, 1X/DAY (0-0-1)
     Route: 048
     Dates: start: 20190727, end: 20190730
  2. PARALEN [PARACETAMOL] [Concomitant]
     Indication: PYREXIA
     Dosage: 500 MG, AS NEEDED
     Route: 048
     Dates: start: 20190722
  3. NEURONTIN [Suspect]
     Active Substance: GABAPENTIN
     Indication: PAIN
     Dosage: 100 MG, 1X/DAY (AT LEAST SINCE APRIL 2019, THE DOSAGE 0-0-1)
     Route: 048
     Dates: start: 201904, end: 20190719
  4. METAMIZOL KALCEKS [Concomitant]
     Indication: PAIN
     Dosage: AS NEEDED
     Route: 042
     Dates: start: 20190719
  5. HELICID [OMEPRAZOLE] [Concomitant]
     Indication: VOMITING
     Dosage: 20 MG, 2X/DAY (THE DOSAGE 1-0-1)
     Route: 048
     Dates: start: 20190722

REACTIONS (3)
  - Off label use [Unknown]
  - Lipase increased [Recovering/Resolving]
  - Product use in unapproved indication [Unknown]

NARRATIVE: CASE EVENT DATE: 20190729
